FAERS Safety Report 7596005-2 (Version None)
Quarter: 2011Q3

REPORT INFORMATION
  Report Type: 
  Country: None (occurrence: None)
  Receive Date: 20110707
  Receipt Date: 20110701
  Transmission Date: 20111222
  Serious: Yes (Death)
  Sender: FDA-Public Use
  Company Number: PHHY2011US60056

PATIENT
  Age: 16 Year
  Sex: Male
  Weight: 50.3 kg

DRUGS (1)
  1. TOBI [Suspect]
     Indication: TRACHEITIS
     Dosage: 300 MG, BID
     Dates: start: 20110306

REACTIONS (1)
  - DEATH [None]
